FAERS Safety Report 8244422-X (Version None)
Quarter: 2012Q1

REPORT INFORMATION
  Report Type: 
  Country: None (occurrence: None)
  Receive Date: 20120329
  Receipt Date: 20120326
  Transmission Date: 20120608
  Serious: Yes (Life-Threatening, Other)
  Sender: FDA-Public Use
  Company Number: JP-ELI_LILLY_AND_COMPANY-JP201203002033

PATIENT
  Sex: Female
  Weight: 57 kg

DRUGS (13)
  1. NORVASC [Concomitant]
     Dosage: 2.5 MG, UNK
     Route: 048
  2. LEVOTHYROXINE SODIUM [Concomitant]
     Dosage: 75 UG, TID
     Route: 048
  3. ALIMTA [Suspect]
     Indication: LARGE CELL LUNG CANCER STAGE III
     Dosage: 700 MG/M2, UNK
     Route: 042
     Dates: start: 20100720, end: 20101013
  4. ALIMTA [Suspect]
     Dosage: 700 MG/M2, UNK
     Route: 042
     Dates: start: 20101116, end: 20101214
  5. VINORELBINE [Concomitant]
     Indication: LARGE CELL LUNG CANCER STAGE III
     Dosage: 35 MG/M2, UNK
     Dates: start: 20110708, end: 20110927
  6. ASPIRIN [Concomitant]
     Dosage: 100 MG, UNK
     Route: 048
  7. METHYCOBAL [Concomitant]
     Dosage: 1000 UNK, UNK
     Route: 048
  8. ALIMTA [Suspect]
     Dosage: 700 MG/M2, UNK
     Route: 042
     Dates: start: 20120118, end: 20120214
  9. SELBEX [Concomitant]
     Dosage: 50 MG, UNK
     Route: 048
  10. MAGMITT [Concomitant]
     Dosage: 1500 MG, UNK
     Route: 048
  11. GASCON [Concomitant]
     Dosage: 120 MG, UNK
     Route: 048
  12. CISPLATIN [Concomitant]
     Indication: LARGE CELL LUNG CANCER STAGE III
     Dosage: 100 MG/M2, UNK
     Route: 042
     Dates: start: 20100720, end: 20101013
  13. FOLIC ACID [Concomitant]
     Indication: PROPHYLAXIS
     Dosage: UNK
     Route: 048
     Dates: start: 20120116

REACTIONS (7)
  - HAEMOGLOBIN DECREASED [None]
  - ENTEROCOLITIS [None]
  - MALAISE [None]
  - CANDIDIASIS [None]
  - LIVER DISORDER [None]
  - RASH [None]
  - DECREASED APPETITE [None]
